FAERS Safety Report 14331912 (Version 19)
Quarter: 2022Q3

REPORT INFORMATION
  Report Type: Report from Study
  Country: JP (occurrence: None)
  Receive Date: 20171228
  Receipt Date: 20220901
  Transmission Date: 20221027
  Serious: Yes (Hospitalization)
  Sender: FDA-Public Use
  Company Number: JP-ROCHE-2041882

PATIENT
  Age: 60 Year
  Sex: Female
  Weight: 56 kg

DRUGS (32)
  1. ATEZOLIZUMAB [Suspect]
     Active Substance: ATEZOLIZUMAB
     Indication: Triple negative breast cancer
     Dosage: DATE OF MOST RECENT DOSE PRIOR TO EVENT ONSET ON 29/NOV/2017 AT 14:05
     Route: 042
     Dates: start: 20171129
  2. PACLITAXEL [Suspect]
     Active Substance: PACLITAXEL
     Indication: Triple negative breast cancer
     Dosage: DATE OF MOST RECENT DOSE (198 MG) ON 29/NOV/2017 AT 15:33
     Route: 042
     Dates: start: 20171129
  3. CEFDINIR [Concomitant]
     Active Substance: CEFDINIR
     Dates: start: 20171114, end: 20171116
  4. REBAMIPIDE [Concomitant]
     Active Substance: REBAMIPIDE
     Indication: Prophylaxis
     Dates: start: 20171114, end: 20171117
  5. REBAMIPIDE [Concomitant]
     Active Substance: REBAMIPIDE
     Dates: start: 20180202
  6. LOXOPROFEN SODIUM DIHYDRATE [Concomitant]
     Active Substance: LOXOPROFEN SODIUM DIHYDRATE
     Dates: start: 20171114, end: 20171117
  7. OHTA^S ISAN [Concomitant]
     Indication: Constipation
     Dates: start: 2002
  8. ACETAMINOPHEN [Concomitant]
     Active Substance: ACETAMINOPHEN
     Indication: Hepatic function abnormal
     Dates: start: 20171130
  9. VANCOMYCIN HYDROCHLORIDE [Concomitant]
     Active Substance: VANCOMYCIN HYDROCHLORIDE
     Dates: start: 20171215, end: 20171220
  10. ZOLPIDEM TARTRATE [Concomitant]
     Active Substance: ZOLPIDEM TARTRATE
     Indication: Insomnia
     Dates: start: 20171017
  11. SODIUM HYALURONATE [Concomitant]
     Active Substance: HYALURONATE SODIUM
     Indication: Dry eye
     Dates: start: 20171216, end: 20180228
  12. SODIUM GUALENATE MONOHYDRATE [Concomitant]
     Active Substance: SODIUM GUALENATE MONOHYDRATE
     Indication: Stomatitis
     Dates: start: 20171217, end: 20180331
  13. SODIUM GUALENATE MONOHYDRATE [Concomitant]
     Active Substance: SODIUM GUALENATE MONOHYDRATE
     Indication: Ulcer
  14. PREDONINE [Concomitant]
     Active Substance: PREDNISOLONE
  15. POTASSIUM ASPARTATE ANHYDROUS [Concomitant]
     Active Substance: POTASSIUM ASPARTATE ANHYDROUS
     Indication: Hypokalaemia
     Dates: start: 20171222, end: 20171226
  16. ESOMEPRAZOLE MAGNESIUM [Concomitant]
     Active Substance: ESOMEPRAZOLE MAGNESIUM
     Indication: Gastritis
     Dates: start: 20171222
  17. ACYCLOVIR [Concomitant]
     Active Substance: ACYCLOVIR
     Indication: Herpes virus infection
     Dates: start: 20171227
  18. SENNOSIDES [Concomitant]
     Active Substance: SENNOSIDES
     Dates: start: 20180131, end: 20180131
  19. CALCIUM CHLORIDE\POTASSIUM CHLORIDE\SODIUM ACETATE\SODIUM CHLORIDE [Concomitant]
     Active Substance: CALCIUM CHLORIDE\POTASSIUM CHLORIDE\SODIUM ACETATE\SODIUM CHLORIDE
     Dates: start: 20180201, end: 20180201
  20. FOSFOMYCIN [Concomitant]
     Active Substance: FOSFOMYCIN
     Dates: start: 20180201, end: 20180201
  21. LOXOPROFEN SODIUM DIHYDRATE [Concomitant]
     Active Substance: LOXOPROFEN SODIUM DIHYDRATE
     Dates: start: 20180102
  22. BROTIZOLAM [Concomitant]
     Active Substance: BROTIZOLAM
     Indication: Insomnia
     Dates: start: 20180131, end: 20180131
  23. ACETAMINOPHEN [Concomitant]
     Active Substance: ACETAMINOPHEN
     Route: 042
     Dates: start: 20180201, end: 20180201
  24. FLURBIPROFEN AXETIL [Concomitant]
     Active Substance: FLURBIPROFEN AXETIL
     Dates: start: 20180201, end: 20180201
  25. DROPERIDOL [Concomitant]
     Active Substance: DROPERIDOL
     Dates: start: 20180201, end: 20180201
  26. TRAMADOL [Concomitant]
     Active Substance: TRAMADOL
     Dates: start: 20180201, end: 20180201
  27. FENTANYL [Concomitant]
     Active Substance: FENTANYL
     Dates: start: 20180201, end: 20180201
  28. DECADRON (DEXAMETHASONE SODIUM PHOSPHATE) [Concomitant]
     Active Substance: DEXAMETHASONE SODIUM PHOSPHATE
     Indication: Illness
     Route: 042
     Dates: start: 20180201, end: 20180201
  29. DECADRON (DEXAMETHASONE SODIUM PHOSPHATE) [Concomitant]
     Active Substance: DEXAMETHASONE SODIUM PHOSPHATE
     Indication: Nausea
  30. REMIFENTANIL HYDROCHLORIDE [Concomitant]
     Active Substance: REMIFENTANIL HYDROCHLORIDE
     Dosage: ANALGESIC
     Dates: start: 20180201, end: 20180201
  31. ROCURONIUM BROMIDE [Concomitant]
     Active Substance: ROCURONIUM BROMIDE
     Dosage: MUSCLE RELAXANTS
     Dates: start: 20180201, end: 20180201
  32. PROPOFOL [Concomitant]
     Active Substance: PROPOFOL
     Dosage: ANESTHETIC
     Dates: start: 20180201, end: 20180201

REACTIONS (2)
  - Hepatic function abnormal [Recovered/Resolved]
  - Febrile neutropenia [Recovered/Resolved]

NARRATIVE: CASE EVENT DATE: 20171211
